FAERS Safety Report 9031904 (Version 1)
Quarter: 2013Q1

REPORT INFORMATION
  Report Type: Report from Study
  Country: US (occurrence: US)
  Receive Date: 20130125
  Receipt Date: 20130125
  Transmission Date: 20140127
  Serious: Yes (Life-Threatening, Hospitalization)
  Sender: FDA-Public Use
  Company Number: US-BRISTOL-MYERS SQUIBB COMPANY-16977944

PATIENT
  Age: 79 Year
  Sex: Male

DRUGS (5)
  1. APIXABAN [Suspect]
     Indication: THROMBOSIS PROPHYLAXIS
     Dosage: STUDY DRUG INTERRUPTED 16SEP2012 AND RESTARTED 18SEP2012
     Route: 048
     Dates: start: 20100813
  2. ATENOLOL + CHLORTHALIDONE [Concomitant]
     Dates: start: 20120824
  3. CELEXA [Concomitant]
     Dates: start: 20120509
  4. LISINOPRIL [Concomitant]
     Dates: start: 20070803
  5. LIPITOR [Concomitant]
     Dates: start: 20120916

REACTIONS (1)
  - Acute myocardial infarction [Recovered/Resolved]
